FAERS Safety Report 10380664 (Version 3)
Quarter: 2014Q4

REPORT INFORMATION
  Report Type: Spontaneous
  Country: TW (occurrence: TW)
  Receive Date: 20140813
  Receipt Date: 20141214
  Transmission Date: 20150528
  Serious: Yes (Death, Life-Threatening, Hospitalization, Other)
  Sender: FDA-Public Use
  Company Number: PHHY2014TW098797

PATIENT
  Age: 60 Year
  Sex: Female
  Weight: 41.5 kg

DRUGS (4)
  1. FERROUS GLUCO-B [Concomitant]
     Indication: IRON DEFICIENCY
     Dosage: 1 DF, 300MG F-G-B, VIT B1 10MG, VIT C 30MG/DAILY
     Route: 048
     Dates: start: 20140526, end: 20140721
  2. IBUPROFEN. [Concomitant]
     Active Substance: IBUPROFEN
     Indication: BONE PAIN
     Dosage: 400 MG, TID
     Route: 048
     Dates: start: 20140611, end: 20140707
  3. ACETAMINOPHEN. [Concomitant]
     Active Substance: ACETAMINOPHEN
     Indication: BONE PAIN
     Dosage: 500 MG, QID
     Route: 048
     Dates: start: 20140611, end: 20140625
  4. TASIGNA [Suspect]
     Active Substance: NILOTINIB
     Indication: CHRONIC MYELOID LEUKAEMIA
     Dosage: 600 MG, DAILY
     Route: 048
     Dates: start: 20140528, end: 20140707

REACTIONS (10)
  - Mouth ulceration [Unknown]
  - Pancytopenia [Unknown]
  - Leukopenia [Fatal]
  - Agranulocytosis [Unknown]
  - Thrombocytopenia [Fatal]
  - Pyrexia [Unknown]
  - Anaemia [Unknown]
  - Infection [Fatal]
  - Swelling face [Unknown]
  - Neutropenia [Unknown]

NARRATIVE: CASE EVENT DATE: 20140707
